FAERS Safety Report 12505778 (Version 1)
Quarter: 2016Q2

REPORT INFORMATION
  Report Type: Spontaneous
  Country: US (occurrence: US)
  Receive Date: 20160628
  Receipt Date: 20160628
  Transmission Date: 20160815
  Serious: No
  Sender: FDA-Public Use
  Company Number: US-DSJP-DSU-2016-107567

PATIENT
  Sex: Female
  Weight: 80.27 kg

DRUGS (6)
  1. WELCHOL [Suspect]
     Active Substance: COLESEVELAM HYDROCHLORIDE
     Indication: BLOOD CHOLESTEROL INCREASED
     Dosage: 625 MG, BID
     Route: 048
  2. PROBIOTIC                          /06395501/ [Concomitant]
     Active Substance: BIFIDOBACTERIUM ANIMALIS SUBSP. LACTIS
     Indication: PRODUCT USED FOR UNKNOWN INDICATION
     Dosage: UNK
  3. SIMVASTATIN. [Concomitant]
     Active Substance: SIMVASTATIN
     Indication: BLOOD CHOLESTEROL INCREASED
     Dosage: 5 MG, QD
     Route: 048
     Dates: start: 20160220
  4. I VITAMIN [Concomitant]
     Indication: PRODUCT USED FOR UNKNOWN INDICATION
     Dosage: UNK
  5. LUTEIN                             /01638501/ [Concomitant]
     Active Substance: LUTEIN
     Indication: PRODUCT USED FOR UNKNOWN INDICATION
     Dosage: UNK
  6. MULTIVITAMIN                       /00097801/ [Concomitant]
     Active Substance: VITAMINS
     Indication: PRODUCT USED FOR UNKNOWN INDICATION
     Dosage: UNK

REACTIONS (2)
  - Rhinorrhoea [Not Recovered/Not Resolved]
  - Incorrect dose administered [Not Recovered/Not Resolved]
